FAERS Safety Report 5684640-8 (Version None)
Quarter: 2008Q1

REPORT INFORMATION
  Report Type: 
  Country: None (occurrence: None)
  Receive Date: 20080328
  Receipt Date: 20080318
  Transmission Date: 20080703
  Serious: Yes (Other)
  Sender: FDA-Public Use
  Company Number: GB-ROCHE-554194

PATIENT
  Age: 68 Year
  Sex: Female
  Weight: 82.6 kg

DRUGS (6)
  1. ORLISTAT [Suspect]
     Indication: OBESITY
     Route: 048
     Dates: start: 20070904, end: 20071218
  2. ORLISTAT [Suspect]
     Route: 048
     Dates: start: 20080128
  3. CO-CODAMOL [Concomitant]
     Indication: PAIN
     Dosage: 1 TABLET MORNING, 2 TABLETS LUNCH AND 2 TABLETS EVENING
     Route: 048
  4. FELODIPINE [Concomitant]
     Indication: BLOOD PRESSURE
     Route: 048
  5. UNSPECIFIED DRUG [Concomitant]
     Indication: GASTRIC DISORDER
     Route: 048
  6. DIHYDROCODEINE [Concomitant]
     Indication: PAIN
     Dosage: 1 TABLET MORNING, 2 TABLETS LUNCH , 2 TABLETS EVENING
     Route: 048

REACTIONS (3)
  - DIARRHOEA [None]
  - MALAISE [None]
  - THYROID DISORDER [None]
